FAERS Safety Report 18784691 (Version 1)
Quarter: 2021Q1

REPORT INFORMATION
  Report Type: Spontaneous
  Country: GB (occurrence: GB)
  Receive Date: 20210125
  Receipt Date: 20210125
  Transmission Date: 20210419
  Serious: Yes (Other)
  Sender: FDA-Public Use
  Company Number: GB-TEVA-2021-GB-1869331

PATIENT
  Age: 69 Year
  Sex: Female
  Weight: 56.6 kg

DRUGS (3)
  1. RISEDRONATE SODIUM. [Suspect]
     Active Substance: RISEDRONATE SODIUM
     Indication: OSTEOPOROSIS
     Dosage: ONE ON SAME DAY EACH WEEK?SWALLOW TABS WITH WATER; TAKE 30 MINS BEFORE FIRST FOOD OR DRINK
     Dates: start: 20201112, end: 20210108
  2. NYSTATIN. [Concomitant]
     Active Substance: NYSTATIN
     Dosage: 2ML TO BE DROPPED INTO THE MOUTH FOUR TIMES A DAY 100000 UNITS/ML
     Route: 048
     Dates: start: 20201208, end: 20210106
  3. PREDNISOLONE. [Concomitant]
     Active Substance: PREDNISOLONE
     Indication: SWOLLEN TONGUE
     Dosage: SIX TO BE TAKEN AS A SINGLE DOSE
     Dates: start: 20201208, end: 20210106

REACTIONS (1)
  - Angioedema [Unknown]

NARRATIVE: CASE EVENT DATE: 20201209
